FAERS Safety Report 7411370-4 (Version None)
Quarter: 2011Q2

REPORT INFORMATION
  Report Type: 
  Country: None (occurrence: None)
  Receive Date: 20110413
  Receipt Date: 20100630
  Transmission Date: 20111010
  Serious: No
  Sender: FDA-Public Use
  Company Number: US-BRISTOL-MYERS SQUIBB COMPANY-15172885

PATIENT
  Age: 51 Year
  Sex: Female

DRUGS (2)
  1. CHEMOTHERAPY [Concomitant]
  2. ERBITUX [Suspect]
     Indication: NEOPLASM MALIGNANT
     Dosage: UNKNOWN DOSE TAKEN FOR 2WEEKS AGO.

REACTIONS (1)
  - DERMATITIS ACNEIFORM [None]
